FAERS Safety Report 8835062 (Version 1)
Quarter: 2012Q4

REPORT INFORMATION
  Report Type: Report from Study
  Country: CA (occurrence: CA)
  Receive Date: 20121011
  Receipt Date: 20121011
  Transmission Date: 20130627
  Serious: Yes (Hospitalization)
  Sender: FDA-Public Use
  Company Number: CA-JNJFOC-20121002745

PATIENT
  Age: 66 Year
  Sex: Female

DRUGS (12)
  1. SIMPONI [Suspect]
     Indication: RHEUMATOID ARTHRITIS
     Route: 058
     Dates: start: 20120718
  2. METHOTREXATE [Concomitant]
  3. FOLIC ACID [Concomitant]
  4. CORTISONE [Concomitant]
  5. CODEINE [Concomitant]
  6. PANTOPRAZOLE [Concomitant]
  7. VITAMIN D [Concomitant]
  8. CALCIUM [Concomitant]
  9. ANTI DEPRESSANT [Concomitant]
  10. LYRICA [Concomitant]
  11. DETROL [Concomitant]
  12. RISEDRONATE [Concomitant]

REACTIONS (1)
  - Pneumonia [Unknown]
